FAERS Safety Report 7144014-X (Version None)
Quarter: 2010Q4

REPORT INFORMATION
  Report Type: 
  Country: None (occurrence: None)
  Receive Date: 20101208
  Receipt Date: 20101129
  Transmission Date: 20110411
  Serious: Yes (Hospitalization)
  Sender: FDA-Public Use
  Company Number: US-BIOGENIDEC-2010BI039907

PATIENT
  Age: 40 Year
  Sex: Female

DRUGS (3)
  1. AVONEX [Suspect]
     Indication: MULTIPLE SCLEROSIS
     Route: 030
     Dates: start: 20100829
  2. AVONEX [Suspect]
     Route: 030
     Dates: start: 20020101, end: 20020829
  3. AVONEX [Suspect]
     Route: 030

REACTIONS (3)
  - FOOD ALLERGY [None]
  - MULTIPLE SCLEROSIS [None]
  - PSEUDOMEMBRANOUS COLITIS [None]
